FAERS Safety Report 6542981-6 (Version None)
Quarter: 2010Q1

REPORT INFORMATION
  Report Type: 
  Country: None (occurrence: None)
  Receive Date: 20100120
  Receipt Date: 20100111
  Transmission Date: 20100710
  Serious: Yes (Hospitalization)
  Sender: FDA-Public Use
  Company Number: FR-ROCHE-678944

PATIENT
  Sex: Male
  Weight: 75 kg

DRUGS (6)
  1. MYCOPHENOLATE MOFETIL [Suspect]
     Indication: RENAL TRANSPLANT
     Route: 065
     Dates: start: 20091212
  2. PROGRAFT [Concomitant]
     Dates: start: 20091213
  3. SOLUPRED [Concomitant]
     Dates: start: 20091213, end: 20091229
  4. SOLUPRED [Concomitant]
     Dates: start: 20100103
  5. TENORMIN [Concomitant]
     Dates: start: 20091217
  6. AMCOR [Concomitant]
     Dates: start: 20091219, end: 20100106

REACTIONS (1)
  - TRANSPLANT REJECTION [None]
